FAERS Safety Report 11615262 (Version 1)
Quarter: 2015Q4

REPORT INFORMATION
  Report Type: Spontaneous
  Country: US (occurrence: US)
  Receive Date: 20151009
  Receipt Date: 20151009
  Transmission Date: 20160304
  Serious: No
  Sender: FDA-Public Use
  Company Number: US-PFIZER INC-2015334272

PATIENT
  Age: 58 Year
  Sex: Female
  Weight: 86 kg

DRUGS (7)
  1. PREDNISONE. [Concomitant]
     Active Substance: PREDNISONE
     Dosage: 1 MG, 2X/DAY
  2. PREDNISONE. [Concomitant]
     Active Substance: PREDNISONE
     Dosage: 5 MG, 2X/DAY
  3. POTASSIUM CHLORIDE. [Concomitant]
     Active Substance: POTASSIUM CHLORIDE
     Dosage: 1 DF, 1X/DAY (10MEQ ER)
  4. DOXYCYCLINE HYCLATE. [Suspect]
     Active Substance: DOXYCYCLINE HYCLATE
     Indication: CYST
     Dosage: 100 MG, 2X/DAY(ONE IN THE MORNING AND ONE IN THE EVENING)
  5. WELLBUTRIN XL [Concomitant]
     Active Substance: BUPROPION HYDROCHLORIDE
     Dosage: 1 DF, 1X/DAY
  6. GABAPENTIN. [Concomitant]
     Active Substance: GABAPENTIN
     Dosage: 600 MG, 2X/DAY
  7. HYDROCHLOROTHIAZIDE. [Concomitant]
     Active Substance: HYDROCHLOROTHIAZIDE
     Dosage: 25 MG, UNK

REACTIONS (4)
  - Product use issue [Unknown]
  - Dysgeusia [Unknown]
  - Tongue coated [Unknown]
  - Oral candidiasis [Not Recovered/Not Resolved]
